FAERS Safety Report 9721732 (Version 1)
Quarter: 2013Q4

REPORT INFORMATION
  Report Type: Spontaneous
  Country: US (occurrence: US)
  Receive Date: 20131201
  Receipt Date: 20131201
  Transmission Date: 20140711
  Serious: No
  Sender: FDA-Public Use
  Company Number: US-ABBVIE-13P-163-1147080-00

PATIENT
  Age: 79 Year
  Sex: Male
  Weight: 78.09 kg

DRUGS (4)
  1. ANDROGEL [Suspect]
     Indication: BLOOD TESTOSTERONE DECREASED
     Dosage: ONE PUMP ACTUATION
     Dates: start: 20130905
  2. LYRICA [Concomitant]
     Indication: NEUROPATHY PERIPHERAL
  3. TRAMADOL [Concomitant]
     Indication: NEUROPATHY PERIPHERAL
  4. ARMOUR THYROID [Concomitant]
     Indication: AUTOIMMUNE THYROIDITIS

REACTIONS (4)
  - Diarrhoea [Not Recovered/Not Resolved]
  - Flatulence [Not Recovered/Not Resolved]
  - Defaecation urgency [Not Recovered/Not Resolved]
  - Dizziness [Recovered/Resolved]
